FAERS Safety Report 13848825 (Version 1)
Quarter: 2017Q3

REPORT INFORMATION
  Report Type: Spontaneous
  Country: US (occurrence: US)
  Receive Date: 20170809
  Receipt Date: 20170809
  Transmission Date: 20171127
  Serious: No
  Sender: FDA-Public Use
  Company Number: None

PATIENT
  Sex: Female
  Weight: 76.66 kg

DRUGS (1)
  1. FLONASE [Suspect]
     Active Substance: FLUTICASONE PROPIONATE
     Indication: RHINITIS ALLERGIC
     Dosage: DATES OG USE - YEARS AGO FOR ONE MONTH?DOSE - 2 SPRAYS EACH NOSTRIL QD NASAL
     Route: 045

REACTIONS (1)
  - Drug ineffective [None]
